FAERS Safety Report 14585301 (Version 3)
Quarter: 2025Q4

REPORT INFORMATION
  Report Type: Spontaneous
  Country: EU (occurrence: EU)
  Receive Date: 20180301
  Receipt Date: 20251205
  Transmission Date: 20260118
  Serious: Yes (Other)
  Sender: INCYTE
  Company Number: EU-002147023-PHHY2018FR026094

PATIENT

DRUGS (2)
  1. RUXOLITINIB [Suspect]
     Active Substance: RUXOLITINIB
     Indication: Myelofibrosis
     Dosage: 30 MG, QD
     Route: 065
  2. RUXOLITINIB [Suspect]
     Active Substance: RUXOLITINIB
     Indication: Splenomegaly
     Dosage: 5 MG, QD
     Route: 065

REACTIONS (7)
  - Basal cell carcinoma [Unknown]
  - Diverticulitis [Unknown]
  - Bone marrow failure [Unknown]
  - Hyperglobulinaemia [Unknown]
  - Anaemia [Unknown]
  - Red blood cell count decreased [Unknown]
  - Inappropriate schedule of product administration [Unknown]
